FAERS Safety Report 5294046-1 (Version None)
Quarter: 2007Q2

REPORT INFORMATION
  Report Type: 
  Country: None (occurrence: None)
  Receive Date: 20070404
  Receipt Date: 20070323
  Transmission Date: 20071010
  Serious: Yes (Hospitalization, Other)
  Sender: FDA-Public Use
  Company Number: 239083

PATIENT
  Age: 26 Year
  Sex: Male

DRUGS (1)
  1. BEVACIZUMAB (BEVACIZUMAB) POWDER AND SOLVENT FOR INFUSION, 100MG [Suspect]
     Indication: RENAL CANCER METASTATIC
     Dosage: 5 MG/KG, Q2W, INTRAVENOUS
     Route: 042

REACTIONS (2)
  - NEPHRITIS INTERSTITIAL [None]
  - RENAL FAILURE ACUTE [None]
